FAERS Safety Report 8909228 (Version 2)
Quarter: 2013Q1

REPORT INFORMATION
  Report Type: Spontaneous
  Country: DK (occurrence: None)
  Receive Date: 20121107
  Receipt Date: 20121221
  Transmission Date: 20140127
  Serious: Yes (Hospitalization)
  Sender: FDA-Public Use
  Company Number: 2012MA012986

PATIENT
  Age: 31 Year
  Sex: Female

DRUGS (3)
  1. FEVERALL [Suspect]
     Dates: start: 20121017
  2. CLOZARIL (CLOZAPINE) [Suspect]
     Indication: SCHIZOPHRENIA
     Route: 048
     Dates: start: 20100301
  3. PARVOLEX [Concomitant]

REACTIONS (1)
  - Overdose [None]
